FAERS Safety Report 6019220-8 (Version None)
Quarter: 2008Q4

REPORT INFORMATION
  Report Type: 
  Country: None (occurrence: None)
  Receive Date: 20081219
  Receipt Date: 20080923
  Transmission Date: 20090506
  Serious: Yes (Other)
  Sender: FDA-Public Use
  Company Number: US200809005123

PATIENT
  Age: 18 Year
  Sex: Female

DRUGS (4)
  1. HUMULIN R [Suspect]
     Indication: DIABETES MELLITUS
     Dosage: 18; 20; 23
     Dates: start: 20080801
  2. SYMYLIN (PRAMLINTIDE ACETATE) [Concomitant]
  3. METFORMIN HCL [Concomitant]
  4. ACTOS [Concomitant]

REACTIONS (9)
  - BLOOD GLUCOSE DECREASED [None]
  - DISTURBANCE IN ATTENTION [None]
  - DYSKINESIA [None]
  - DYSPNOEA [None]
  - GAIT DISTURBANCE [None]
  - HYPOGLYCAEMIC SEIZURE [None]
  - MUSCLE TIGHTNESS [None]
  - MYDRIASIS [None]
  - NYSTAGMUS [None]
